FAERS Safety Report 9001665 (Version 2)
Quarter: 2013Q1

REPORT INFORMATION
  Report Type: Spontaneous
  Country: US (occurrence: US)
  Receive Date: 20130107
  Receipt Date: 20130221
  Transmission Date: 20140127
  Serious: Yes (Other)
  Sender: FDA-Public Use
  Company Number: US-GILEAD-2013-0067291

PATIENT
  Sex: Male

DRUGS (2)
  1. LETAIRIS [Suspect]
     Indication: PULMONARY ARTERIAL HYPERTENSION
     Dosage: 5 MG, QD
     Route: 048
     Dates: start: 20121022, end: 201212
  2. LETAIRIS [Suspect]
     Dates: start: 20121023

REACTIONS (2)
  - Cardiac pacemaker insertion [Recovered/Resolved]
  - Local swelling [Recovered/Resolved]
